FAERS Safety Report 9729416 (Version 1)
Quarter: 2013Q4

REPORT INFORMATION
  Report Type: Spontaneous
  Country: US (occurrence: US)
  Receive Date: 20131204
  Receipt Date: 20131204
  Transmission Date: 20140711
  Serious: No
  Sender: FDA-Public Use
  Company Number: US-GILEAD-2009-0021193

PATIENT
  Sex: Male
  Weight: 89.81 kg

DRUGS (13)
  1. LETAIRIS [Suspect]
     Indication: PULMONARY ARTERIAL HYPERTENSION
     Route: 048
     Dates: start: 20090313
  2. AMOXICILLIN [Concomitant]
  3. ALDACTONE [Concomitant]
  4. LASIX [Concomitant]
  5. ENULOSE [Concomitant]
  6. LEVOTHYROXINE [Concomitant]
  7. SM FLAX OIL [Concomitant]
  8. MARSHMALLOW ROOT [Concomitant]
  9. ESSIAC [Concomitant]
  10. GASTROFIBER [Concomitant]
  11. SP DIETARY [Concomitant]
  12. KANGEN [Concomitant]
  13. SP GREEN FOOD [Concomitant]

REACTIONS (1)
  - Fluid retention [Unknown]
